FAERS Safety Report 7519168-3 (Version None)
Quarter: 2011Q2

REPORT INFORMATION
  Report Type: 
  Country: None (occurrence: None)
  Receive Date: 20110602
  Receipt Date: 20090606
  Transmission Date: 20111010
  Serious: Yes (Death, Hospitalization, Other)
  Sender: FDA-Public Use
  Company Number: US-BAYER-200922415NA

PATIENT
  Age: 73 Year
  Sex: Female
  Weight: 78 kg

DRUGS (24)
  1. COUMADIN [Concomitant]
     Dosage: 5 MG, UNK
     Route: 048
  2. PREMARIN [Concomitant]
     Dosage: UNK
     Route: 048
  3. HEPARIN [Concomitant]
     Dosage: 5000 U, UNK
     Route: 042
     Dates: start: 20070627
  4. VERSED [Concomitant]
     Dosage: UNK
     Route: 042
     Dates: start: 20070627
  5. TRASYLOL [Suspect]
     Dosage: UNSPECIFIED RATE OF INFUSION
     Route: 042
     Dates: start: 20070627, end: 20070627
  6. CARDIZEM [Concomitant]
     Dosage: 240 MG, UNK
     Route: 048
  7. CARTIA XT [Concomitant]
     Dosage: 300 MG, UNK
     Route: 048
  8. TOPROL-XL [Concomitant]
     Dosage: 25 MG, UNK
     Route: 048
     Dates: start: 19960101, end: 20071101
  9. HYDROCHLOROTHIAZIDE [Concomitant]
     Dosage: 25 MG, QD
     Route: 048
     Dates: start: 19960101, end: 20071101
  10. TRICOR [Concomitant]
     Dosage: 48 MG, UNK
     Route: 048
  11. RED BLOOD CELLS [Concomitant]
     Dosage: 4 U, ONCE
     Route: 042
     Dates: start: 20070627
  12. ATORVASTATIN [Concomitant]
     Indication: BLOOD CHOLESTEROL INCREASED
     Dosage: UNK
     Route: 048
     Dates: start: 19960101, end: 20071101
  13. CLONIDINE [Concomitant]
     Dosage: 0.2 MG, UNK
     Route: 048
  14. LIPITOR [Concomitant]
     Dosage: 20 MG, QD
     Route: 048
     Dates: start: 19960101, end: 20071101
  15. AMITRIPTYLINE HCL [Concomitant]
     Indication: DEPRESSION
     Dosage: 10 MG, QD
     Route: 048
     Dates: start: 19960101, end: 20071101
  16. NORVASC [Concomitant]
     Dosage: 5 MG, UNK
     Route: 048
  17. BENICAR [Concomitant]
     Dosage: 20 MG, UNK
     Route: 048
  18. PAPAVERINE [Concomitant]
     Dosage: 120 UNK, UNK
     Route: 042
     Dates: start: 20070627
  19. TRASYLOL [Suspect]
     Indication: CORONARY ARTERY BYPASS
     Dosage: 200 ML, ONCE, LOADING DOSE
     Route: 042
     Dates: start: 20070627, end: 20070627
  20. LISINOPRIL [Concomitant]
     Indication: HYPERTENSION
     Dosage: 10 MG, UNK
     Route: 048
     Dates: start: 19960101, end: 20071101
  21. PLAVIX [Concomitant]
     Dosage: 75 MG, QD
     Route: 048
  22. ACETYLSALICYLIC ACID SRT [Concomitant]
     Dosage: 81 MG, QD
     Route: 048
     Dates: start: 19960101, end: 20071101
  23. BUMETANIDE [Concomitant]
     Dosage: 1 MG, UNK
     Route: 048
  24. ALTACE [Concomitant]
     Dosage: 2.5 MG, UNK
     Route: 048

REACTIONS (12)
  - RENAL FAILURE [None]
  - RENAL INJURY [None]
  - STRESS [None]
  - FEAR [None]
  - EMOTIONAL DISTRESS [None]
  - PAIN [None]
  - ANXIETY [None]
  - DEATH [None]
  - ANHEDONIA [None]
  - RENAL IMPAIRMENT [None]
  - UNEVALUABLE EVENT [None]
  - INJURY [None]
